FAERS Safety Report 20810805 (Version 2)
Quarter: 2022Q3

REPORT INFORMATION
  Report Type: Spontaneous
  Country: US (occurrence: US)
  Receive Date: 20220510
  Receipt Date: 20220707
  Transmission Date: 20221027
  Serious: No
  Sender: FDA-Public Use
  Company Number: US-BRISTOL-MYERS SQUIBB COMPANY-2022-033049

PATIENT
  Age: 56 Year
  Sex: Male

DRUGS (2)
  1. REVLIMID [Suspect]
     Active Substance: LENALIDOMIDE
     Indication: Plasma cell myeloma
     Dosage: 1 WEEK OFF
     Route: 048
     Dates: start: 20220319
  2. REVLIMID [Suspect]
     Active Substance: LENALIDOMIDE
     Dosage: 1 WEEK OFF
     Route: 048
     Dates: start: 20220319

REACTIONS (2)
  - Bone disorder [Unknown]
  - Nausea [Unknown]

NARRATIVE: CASE EVENT DATE: 20220407
